FAERS Safety Report 24225358 (Version 1)
Quarter: 2024Q3

REPORT INFORMATION
  Report Type: Spontaneous
  Country: US (occurrence: US)
  Receive Date: 20240820
  Receipt Date: 20240820
  Transmission Date: 20241017
  Serious: No
  Sender: ROCHE
  Company Number: US-ROCHE-10000057822

PATIENT
  Age: 64 Year
  Sex: Female
  Weight: 58.51 kg

DRUGS (3)
  1. HERCEPTIN HYLECTA [Suspect]
     Active Substance: HYALURONIDASE-OYSK\TRASTUZUMAB
     Indication: Breast cancer female
     Dosage: 600MG/10,000 UNITS ALTERNATE BETWEEN L/R THIGH
     Route: 058
     Dates: start: 202406
  2. HERCEPTIN HYLECTA [Suspect]
     Active Substance: HYALURONIDASE-OYSK\TRASTUZUMAB
     Dosage: 600MG/10,000 UNITS ALTERNATE BETWEEN L/R THIGH
     Route: 058
  3. HERCEPTIN HYLECTA [Suspect]
     Active Substance: HYALURONIDASE-OYSK\TRASTUZUMAB
     Dosage: 600MG/10,000 UNITS ALTERNATE BETWEEN L/R THIGH
     Route: 058

REACTIONS (4)
  - Erythema [Not Recovered/Not Resolved]
  - Injection site erythema [Recovered/Resolved]
  - Erythema of eyelid [Not Recovered/Not Resolved]
  - Lip erythema [Not Recovered/Not Resolved]
